FAERS Safety Report 23927616 (Version 4)
Quarter: 2024Q3

REPORT INFORMATION
  Report Type: Report from Study
  Country: US (occurrence: US)
  Receive Date: 20240531
  Receipt Date: 20240802
  Transmission Date: 20241016
  Serious: Yes (Death, Hospitalization)
  Sender: ABBVIE
  Company Number: US-ABBVIE-5781428

PATIENT
  Age: 80 Year
  Sex: Male
  Weight: 86 kg

DRUGS (15)
  1. VENCLEXTA [Suspect]
     Active Substance: VENETOCLAX
     Indication: Acute myeloid leukaemia
     Dosage: FORM STRENGTH 70 MG
     Route: 048
     Dates: start: 202306
  2. VENCLEXTA [Suspect]
     Active Substance: VENETOCLAX
     Indication: Acute myeloid leukaemia
     Dosage: TAKE 2 ( 10 MG TABLET) AND 50 MG FOR 2 WEEKS ON AND 2 WEEKS OFF. ON DAYS 1-14 EVERY 28 DAYS.
     Route: 048
  3. ERLEADA [Concomitant]
     Active Substance: APALUTAMIDE
     Indication: Metastases to bone
     Dosage: 60 MG TABLET, TAKE 3 TABLETS (180 MG TOTAL) BY MOUTH DAILY
     Route: 048
  4. DESYREL [Concomitant]
     Active Substance: TRAZODONE HYDROCHLORIDE
     Indication: Sleep disorder
     Dosage: 50 MG TABLET, TAKE 1 TABLET (50 MG TOTAL) BY MOUTH NIGHTLY AS NEEDED FOR SLEEP
     Route: 048
  5. B complex with vitamin c [Concomitant]
     Indication: Product used for unknown indication
     Dosage: 18-10-45-5-250 MG TABLET, TAKE 1 TABLET BY MOUTH DAILY
     Route: 048
  6. RETACRIT [Concomitant]
     Active Substance: EPOETIN ALFA-EPBX
     Indication: Product used for unknown indication
     Dosage: 10,000 UNIT/ML INJECTION,  INJECT 10,000 UNITS AS DIRECTED 2 TIMES A WEEK
     Route: 051
  7. PRINIVIL [Concomitant]
     Active Substance: LISINOPRIL
     Indication: Product used for unknown indication
     Dosage: TAKE 1 TABLET (5 MG TOTAL) BY MOUTH DAILY
     Route: 048
  8. ZESTRIL [Concomitant]
     Active Substance: LISINOPRIL
     Indication: Product used for unknown indication
     Dosage: 5 MG TABLET, TAKE 1 TABLET (5 MG TOTAL) BY MOUTH DAILY
     Route: 048
  9. LOPRESSOR [Concomitant]
     Active Substance: METOPROLOL TARTRATE
     Indication: Product used for unknown indication
     Dosage: 50 MG TABLET, TAKE 1 TABLET (50 TOTAL) BY MOUTH 2 TIMES A DAY
     Route: 048
  10. ZOFRAN [Concomitant]
     Active Substance: ONDANSETRON HYDROCHLORIDE
     Indication: Product used for unknown indication
     Dosage: 4 MG DISINTEGRATING TABLET, TAKE 1 TABLET (4 MG TOTAL) BY MOUTH EVERY 12 HOURS AS NEEDED
     Route: 048
  11. XTAMPZA ER [Concomitant]
     Active Substance: OXYCODONE
     Indication: Product used for unknown indication
     Dosage: 9 MG CAPSULE, TAKE 1 CAPSULE BY MOUTH 2 TIMES A DAY, MAX DAILY AMOUNT: 2 CAPSULES
     Route: 048
  12. ERGOCALCIFEROL [Concomitant]
     Active Substance: ERGOCALCIFEROL
     Indication: Product used for unknown indication
     Dosage: 1,250 MCG (50,000 UNIT) CAPSULE, TAKE 1 CAPSULE (50,000 UNITS TOTAL) BY MOUTH EVERY SATURDAY
     Route: 048
  13. LIPITOR [Concomitant]
     Active Substance: ATORVASTATIN CALCIUM
     Indication: Product used for unknown indication
     Dosage: 40 MG TABLET, TAKE 1 TABLET (40 MG TOTAL BY MOUTH DAILY
     Route: 048
  14. PERCOCET [Concomitant]
     Active Substance: ACETAMINOPHEN\OXYCODONE HYDROCHLORIDE
     Indication: Pain
     Dosage: 5-325 MG TABLET, TAKE 1 TABLET BY MOUTH EVERY 6 HOURS AS NEEDED FOR PAIN
     Route: 048
  15. AMBIEN [Concomitant]
     Active Substance: ZOLPIDEM TARTRATE
     Indication: Product used for unknown indication
     Dosage: FORM STRENGTH: 10MG
     Route: 048

REACTIONS (6)
  - Respiratory failure [Fatal]
  - Cardiac failure [Fatal]
  - Myelodysplastic syndrome transformation [Fatal]
  - Haemoglobin decreased [Unknown]
  - Off label use [Not Recovered/Not Resolved]
  - Platelet count decreased [Unknown]

NARRATIVE: CASE EVENT DATE: 20240401
